FAERS Safety Report 8863046 (Version 2)
Quarter: 2012Q4

REPORT INFORMATION
  Report Type: 
  Country: US (occurrence: US)
  Receive Date: 20121026
  Receipt Date: 20121114
  Transmission Date: 20130627
  Serious: Yes (Life-Threatening, Hospitalization)
  Sender: FDA-Public Use
  Company Number: US-009507513-1210USA011423

PATIENT
  Age: 48 Year
  Sex: Female

DRUGS (2)
  1. JANUMET XR [Suspect]
     Indication: TYPE 2 DIABETES MELLITUS
     Dosage: 2 tab, 50mg/1000 mg, qd
     Route: 048
     Dates: end: 201210
  2. JANUMET XR [Suspect]
     Dosage: 1 tab, qd,50mg/1000 mg
     Route: 048

REACTIONS (1)
  - Lactic acidosis [Recovering/Resolving]
